FAERS Safety Report 9955197 (Version 2)
Quarter: 2014Q1

REPORT INFORMATION
  Report Type: Spontaneous
  Country: GB (occurrence: GB)
  Receive Date: 20140304
  Receipt Date: 20140331
  Transmission Date: 20141002
  Serious: Yes (Other)
  Sender: FDA-Public Use
  Company Number: GB-ELI_LILLY_AND_COMPANY-GB201402007802

PATIENT
  Age: 19 Year
  Sex: Female

DRUGS (4)
  1. ATOMOXETINE HYDROCHLORIDE [Suspect]
     Indication: PRODUCT USED FOR UNKNOWN INDICATION
     Dosage: UNK UNK, UNKNOWN (DOSAGE FORM: UNSPECIFIED)
     Route: 065
  2. RISPERDAL [Suspect]
     Indication: SCHIZOPHRENIA
     Dosage: 4 MG, UNKNOWN
     Route: 048
     Dates: start: 20131220
  3. RISPERDAL [Suspect]
     Dosage: 3 MG, UNKNOWN
     Route: 048
  4. SEROQUEL [Suspect]
     Indication: PRODUCT USED FOR UNKNOWN INDICATION
     Dosage: UNK UNK, UNKNOWN
     Route: 065

REACTIONS (2)
  - Electrocardiogram QT prolonged [Recovered/Resolved]
  - Palpitations [Unknown]
